FAERS Safety Report 7533543-2 (Version None)
Quarter: 2011Q2

REPORT INFORMATION
  Report Type: 
  Country: None (occurrence: None)
  Receive Date: 20110608
  Receipt Date: 20060116
  Transmission Date: 20111010
  Serious: Yes (Death)
  Sender: FDA-Public Use
  Company Number: PHHO2005MX17125

PATIENT
  Sex: Male
  Weight: 62.5 kg

DRUGS (1)
  1. GLEEVEC [Suspect]
     Indication: CHRONIC MYELOID LEUKAEMIA
     Dosage: 400 MG, QD
     Route: 048
     Dates: start: 20050804, end: 20050906

REACTIONS (4)
  - NEOPLASM MALIGNANT [None]
  - DRUG INEFFECTIVE [None]
  - RENAL DISORDER [None]
  - PLEURAL EFFUSION [None]
